FAERS Safety Report 16776608 (Version 3)
Quarter: 2020Q1

REPORT INFORMATION
  Report Type: Spontaneous
  Country: AT (occurrence: AT)
  Receive Date: 20190905
  Receipt Date: 20200213
  Transmission Date: 20200409
  Serious: Yes (Life-Threatening, Hospitalization, Other)
  Sender: FDA-Public Use
  Company Number: AT-PFIZER INC-2019367161

PATIENT
  Age: 56 Year
  Sex: Female

DRUGS (27)
  1. DOXORUBICIN HCL [Suspect]
     Active Substance: DOXORUBICIN HYDROCHLORIDE
     Dosage: UNK; (DOSE WAS REDUCED FROM THE 2ND CYCLE ONWARDS (TO DOSE LEVEL 3))
  2. CYCLOPHOSPHAMIDE. [Suspect]
     Active Substance: CYCLOPHOSPHAMIDE
     Dosage: UNK; UNK (DOSE WAS REDUCED FROM THE 2ND CYCLE ONWARDS (TO DOSE LEVEL 3))
  3. PREDNISONE. [Suspect]
     Active Substance: PREDNISONE
     Indication: HODGKIN^S DISEASE
     Dosage: UNK, CYCLIC (4 CYCLES, BEACOPP THERAPY)
  4. PREDNISONE. [Suspect]
     Active Substance: PREDNISONE
     Dosage: UNK
     Dates: start: 2018
  5. PROCARBAZINE [Suspect]
     Active Substance: PROCARBAZINE
     Dosage: UNK
     Dates: start: 2018
  6. BLEOMYCIN [Suspect]
     Active Substance: BLEOMYCIN SULFATE
     Dosage: UNK  (THE DOSE WAS REDUCED  TO DOSE LEVEL 2)
  7. VINCRISTINE SULFATE. [Suspect]
     Active Substance: VINCRISTINE SULFATE
     Indication: HODGKIN^S DISEASE NODULAR SCLEROSIS STAGE IV
     Dosage: UNK; (DOSE WAS REDUCED FROM THE 2ND CYCLE ONWARDS (TO DOSE LEVEL 3))
  8. VINCRISTINE SULFATE. [Suspect]
     Active Substance: VINCRISTINE SULFATE
     Dosage: UNK
     Dates: start: 2018
  9. BLEOMYCIN [Suspect]
     Active Substance: BLEOMYCIN SULFATE
     Indication: HODGKIN^S DISEASE NODULAR SCLEROSIS STAGE IV
     Dosage: UNK UNK, CYCLIC (4 CYCLES, BEACOPP THERAPY)
  10. ETOPOSIDE. [Suspect]
     Active Substance: ETOPOSIDE
     Indication: HODGKIN^S DISEASE
     Dosage: UNK UNK, CYCLIC (4 CYCLES, BEACOPP THERAPY)
  11. CYCLOPHOSPHAMIDE. [Suspect]
     Active Substance: CYCLOPHOSPHAMIDE
     Indication: HODGKIN^S DISEASE NODULAR SCLEROSIS STAGE IV
     Dosage: UNK, CYCLIC (4 CYCLES, BEACOPP THERAPY)
  12. CYCLOPHOSPHAMIDE. [Suspect]
     Active Substance: CYCLOPHOSPHAMIDE
     Dosage: UNK
     Dates: start: 2018
  13. DOXORUBICIN HCL [Suspect]
     Active Substance: DOXORUBICIN HYDROCHLORIDE
     Indication: HODGKIN^S DISEASE
     Dosage: UNK UNK, CYCLIC (4 CYCLES, BEACOPP THERAPY, REGIMEN A + AVD)
  14. VINCRISTINE SULFATE. [Suspect]
     Active Substance: VINCRISTINE SULFATE
     Dosage: UNK; UNK (THE DOSE WAS REDUCED (TO DOSE LEVEL 2)
  15. ETOPOSIDE. [Suspect]
     Active Substance: ETOPOSIDE
     Dosage: UNK; (DOSE WAS REDUCED FROM THE 2ND CYCLE ONWARDS (TO DOSE LEVEL 3)
  16. DOXORUBICIN HCL [Suspect]
     Active Substance: DOXORUBICIN HYDROCHLORIDE
     Dosage: UNK
     Dates: start: 2018
  17. ONCOVIN [Suspect]
     Active Substance: VINCRISTINE SULFATE
     Indication: HODGKIN^S DISEASE
     Dosage: UNK, CYCLIC (4 CYCLES, BEACOPP THERAPY)
  18. ETOPOSIDE. [Suspect]
     Active Substance: ETOPOSIDE
     Dosage: UNK, (THE DOSE WAS REDUCED (TO DOSE LEVEL 2))
  19. ETOPOSIDE. [Suspect]
     Active Substance: ETOPOSIDE
     Dosage: UNK
     Dates: start: 2018
  20. PROCARBAZINE [Suspect]
     Active Substance: PROCARBAZINE
     Indication: HODGKIN^S DISEASE
     Dosage: UNK, CYCLIC (4 CYCLES, BEACOPP THERAPY)
  21. PROCARBAZINE [Suspect]
     Active Substance: PROCARBAZINE
     Dosage: UNK; (THE DOSE WAS REDUCED (TO DOSE LEVEL 2)
  22. PROCARBAZINE [Suspect]
     Active Substance: PROCARBAZINE
     Dosage: UNK; (DOSE WAS REDUCED FROM THE 2ND CYCLE ONWARDS (TO DOSE LEVEL 3))
  23. BLEOMYCIN [Suspect]
     Active Substance: BLEOMYCIN SULFATE
     Dosage: UNK
     Dates: start: 2018
  24. PREDNISONE. [Suspect]
     Active Substance: PREDNISONE
     Dosage: UNK; UNK, (THE DOSE WAS REDUCED (TO DOSE LEVEL 2)
  25. DOXORUBICIN HCL [Suspect]
     Active Substance: DOXORUBICIN HYDROCHLORIDE
     Dosage: UNK; (THE DOSE WAS REDUCED (TO DOSE LEVEL 2)
  26. PREDNISONE. [Suspect]
     Active Substance: PREDNISONE
     Dosage: UNK; UNK (DOSE WAS REDUCED FROM THE 2ND CYCLE ONWARDS (TO DOSE LEVEL 3)
  27. CYCLOPHOSPHAMIDE. [Suspect]
     Active Substance: CYCLOPHOSPHAMIDE
     Dosage: UNK; (THE DOSE WAS REDUCED (TO DOSE LEVEL 2)

REACTIONS (3)
  - Thrombocytopenia [Recovered/Resolved]
  - Febrile neutropenia [Recovered/Resolved]
  - Neutropenia [Recovered/Resolved]
